FAERS Safety Report 8249769-9 (Version None)
Quarter: 2012Q2

REPORT INFORMATION
  Report Type: 
  Country: None (occurrence: None)
  Receive Date: 20120402
  Receipt Date: 20120323
  Transmission Date: 20120825
  Serious: Yes (Other)
  Sender: FDA-Public Use
  Company Number: PHEH2012US006117

PATIENT
  Sex: Female
  Weight: 66 kg

DRUGS (3)
  1. EXJADE [Suspect]
     Indication: IRON OVERLOAD
     Dosage: 1250 MG, QD
     Route: 048
     Dates: end: 20120207
  2. REVLIMID [Concomitant]
     Indication: MYELODYSPLASTIC SYNDROME
     Dosage: 5 MG, QD
     Route: 048
  3. PROCRIT [Concomitant]
     Indication: HAEMOGLOBIN DECREASED
     Dosage: 40000 U, TIW
     Route: 058

REACTIONS (4)
  - BLOOD CREATININE INCREASED [None]
  - URINE OUTPUT INCREASED [None]
  - RENAL DISORDER [None]
  - DYSURIA [None]
